FAERS Safety Report 4939491-6 (Version None)
Quarter: 2006Q1

REPORT INFORMATION
  Report Type: 
  Country: None (occurrence: None)
  Receive Date: 20060306
  Receipt Date: 20060224
  Transmission Date: 20060701
  Serious: Yes (Life-Threatening)
  Sender: FDA-Public Use
  Company Number: JP200602000002

PATIENT
  Age: 67 Year
  Sex: Male
  Weight: 45 kg

DRUGS (3)
  1. ZYPREXA [Suspect]
     Indication: SCHIZOPHRENIA
     Dosage: 10 MG, DAILY (1/D), ORAL
     Route: 048
     Dates: start: 20060106, end: 20060127
  2. RISPERIDONE [Concomitant]
  3. PAXIL [Concomitant]

REACTIONS (3)
  - EPILEPSY [None]
  - INSOMNIA [None]
  - LOSS OF CONSCIOUSNESS [None]
